FAERS Safety Report 9236204 (Version 2)
Quarter: 2013Q2

REPORT INFORMATION
  Report Type: Spontaneous
  Country: FR (occurrence: FR)
  Receive Date: 20130417
  Receipt Date: 20130423
  Transmission Date: 20140414
  Serious: Yes (Hospitalization, Other)
  Sender: FDA-Public Use
  Company Number: FR-PFIZER INC-2013118180

PATIENT
  Age: 84 Year
  Sex: Female

DRUGS (13)
  1. CORDARONE [Suspect]
     Indication: CARDIAC FAILURE
     Dosage: 200 MG DAILY AT 5 DAYS PER WEEK
     Route: 048
     Dates: end: 20130104
  2. LOVENOX [Suspect]
     Indication: THROMBOSIS PROPHYLAXIS
     Dosage: 0.4 ML, DAILY
     Route: 058
     Dates: start: 201209, end: 201210
  3. LOVENOX [Suspect]
     Indication: DEEP VEIN THROMBOSIS
     Dosage: 0.6 ML, 2X/DAY
     Route: 058
     Dates: start: 201210, end: 201210
  4. LOVENOX [Suspect]
     Indication: PROPHYLAXIS
     Dosage: 0.4 ML, DAILY
     Route: 058
     Dates: start: 201210, end: 20121221
  5. PREVISCAN [Suspect]
     Indication: THROMBOSIS PROPHYLAXIS
     Dosage: 1 DF (1 TABLET), DAILY
     Route: 048
     Dates: end: 20120915
  6. PREVISCAN [Suspect]
     Dosage: 1 DF (1 TABLET), DAILY
     Route: 048
     Dates: start: 201211, end: 20121221
  7. CARDENSIEL [Suspect]
     Indication: CARDIAC FAILURE
     Dosage: 0.5 DF (0.5 TABLET), DAILY
     Route: 048
     Dates: end: 20121031
  8. TEMERIT [Suspect]
     Dosage: 0.5 DOSAGE FORM; DAILY
     Route: 048
     Dates: start: 20121031, end: 20130114
  9. ATACAND [Concomitant]
     Dosage: UNK
  10. LYRICA [Concomitant]
     Dosage: UNK
  11. DEROXAT [Concomitant]
     Dosage: UNK
  12. DIAMICRON [Concomitant]
     Dosage: UNK
  13. TRANSIPEG [Concomitant]
     Indication: CONSTIPATION
     Dosage: UNK

REACTIONS (5)
  - Fall [Recovered/Resolved]
  - Bradycardia [Recovered/Resolved]
  - Haematoma [Recovered/Resolved]
  - Anaemia [Recovered/Resolved]
  - Ankle fracture [Unknown]
